FAERS Safety Report 5819938-3 (Version None)
Quarter: 2008Q3

REPORT INFORMATION
  Report Type: 
  Country: None (occurrence: None)
  Receive Date: 20080717
  Receipt Date: 20080709
  Transmission Date: 20090109
  Serious: No
  Sender: FDA-Public Use
  Company Number: DSU-2008-01037

PATIENT
  Age: 73 Year
  Sex: Female

DRUGS (2)
  1. WELCHOL [Suspect]
     Indication: GLYCOSYLATED HAEMOGLOBIN INCREASED
     Dosage: 3750 MG (1875 MQ,BID),PER ORAL
  2. WELCHOL [Suspect]
     Indication: HYPERLIPIDAEMIA
     Dosage: 3750 MG (1875 MQ,BID),PER ORAL

REACTIONS (1)
  - DYSPHAGIA [None]
